FAERS Safety Report 8581868-4 (Version None)
Quarter: 2012Q3

REPORT INFORMATION
  Report Type: 
  Country: None (occurrence: None)
  Receive Date: 20120809
  Receipt Date: 20120709
  Transmission Date: 20120928
  Serious: Yes (Other)
  Sender: FDA-Public Use
  Company Number: DE-ABBOTT-12P-062-0966057-00

PATIENT
  Age: 77 Year
  Sex: Male

DRUGS (2)
  1. LEUPROLIDE ACETATE [Suspect]
     Indication: PROSTATE CANCER
     Route: 058
     Dates: start: 20000613
  2. LEUPROLIDE ACETATE [Suspect]
     Indication: PROSTATECTOMY

REACTIONS (1)
  - LEUKAEMIA [None]
